FAERS Safety Report 5765886-7 (Version None)
Quarter: 2008Q2

REPORT INFORMATION
  Report Type: 
  Country: None (occurrence: None)
  Receive Date: 20080610
  Receipt Date: 20080610
  Transmission Date: 20081010
  Serious: No
  Sender: FDA-Public Use
  Company Number: None

PATIENT
  Sex: Female
  Weight: 74.3 kg

DRUGS (15)
  1. TEMOZOLOMIDE [Suspect]
     Dosage: 3885 MG
  2. TEMOZOLOMIDE [Suspect]
  3. TEMOZOLOMIDE [Suspect]
  4. ADVAIR DISKUS 100/50 [Concomitant]
  5. ALBUTEROL [Concomitant]
  6. ALLEGRA [Concomitant]
  7. DEXAMETHASONE TAB [Concomitant]
  8. DIFLUCAN [Concomitant]
  9. EVISTA [Concomitant]
  10. FLONASE [Concomitant]
  11. KEPPRA [Concomitant]
  12. MULTI-VITAMIN [Concomitant]
  13. NEXIUM [Concomitant]
  14. MULTIVITAMIN [Concomitant]
  15. SINGULAIR [Concomitant]

REACTIONS (3)
  - CANDIDIASIS [None]
  - FUNGAL INFECTION [None]
  - LYMPHOPENIA [None]
